FAERS Safety Report 18717913 (Version 1)
Quarter: 2021Q1

REPORT INFORMATION
  Report Type: Spontaneous
  Country: US (occurrence: US)
  Receive Date: 20210108
  Receipt Date: 20210108
  Transmission Date: 20210419
  Serious: Yes (Other)
  Sender: FDA-Public Use
  Company Number: None

PATIENT
  Age: 71 Year
  Sex: Male
  Weight: 95.4 kg

DRUGS (6)
  1. ACETAMINOPHEN 325 MG TAB [Concomitant]
     Dates: start: 20210105, end: 20210107
  2. GAMMAGARD [Suspect]
     Active Substance: HUMAN IMMUNOGLOBULIN G
     Indication: CHRONIC INFLAMMATORY DEMYELINATING POLYRADICULONEUROPATHY
     Dosage: ?          OTHER FREQUENCY:FOR 3 DAYS;?
     Route: 042
     Dates: start: 20210105, end: 20210107
  3. HEPARIN LOCK FLUSH [Concomitant]
     Active Substance: HEPARIN SODIUM
     Dates: start: 20210105, end: 20210107
  4. FLUSH NORMAL SALINE [Concomitant]
     Dates: start: 20210105, end: 20210107
  5. GAMMAGARD [Suspect]
     Active Substance: HUMAN IMMUNOGLOBULIN G
     Indication: CHRONIC INFLAMMATORY DEMYELINATING POLYRADICULONEUROPATHY
     Dosage: ?          OTHER FREQUENCY:FOR 3 DAYS Q4W;?
     Route: 042
     Dates: start: 20210105, end: 20210107
  6. DIPHENHYDRAMINE 25 MG PO [Concomitant]
     Dates: start: 20210105, end: 20210107

REACTIONS (3)
  - Rash [None]
  - Headache [None]
  - Myalgia [None]

NARRATIVE: CASE EVENT DATE: 20210108
